FAERS Safety Report 13424005 (Version 1)
Quarter: 2017Q2

REPORT INFORMATION
  Report Type: Other
  Country: CA (occurrence: CA)
  Receive Date: 20170410
  Receipt Date: 20170410
  Transmission Date: 20170830
  Serious: Yes (Hospitalization)
  Sender: FDA-Public Use
  Company Number: CA-VALIDUS PHARMACEUTICALS LLC-CA-2017VAL000492

PATIENT
  Age: 71 Year
  Sex: Female

DRUGS (29)
  1. AMITRIPTYLINE [Suspect]
     Active Substance: AMITRIPTYLINE
     Indication: INSOMNIA
     Dosage: 75 MG, EVERY HOUR
     Route: 065
  2. AMLODIPINE [Concomitant]
     Active Substance: AMLODIPINE BESYLATE
     Indication: PRODUCT USED FOR UNKNOWN INDICATION
     Dosage: UNK
  3. LEVOTHYROXINE. [Concomitant]
     Active Substance: LEVOTHYROXINE
     Indication: PRODUCT USED FOR UNKNOWN INDICATION
     Dosage: UNK
  4. DILTIAZEM. [Suspect]
     Active Substance: DILTIAZEM
     Indication: CORONARY ARTERY DISEASE
  5. CYCLOBENZAPRINE. [Suspect]
     Active Substance: CYCLOBENZAPRINE
     Indication: FIBROMYALGIA
     Dosage: 5 MG, TID
     Route: 065
  6. SALBUTAMOL [Concomitant]
     Active Substance: ALBUTEROL
     Indication: PRODUCT USED FOR UNKNOWN INDICATION
     Dosage: UNK
  7. DILTIAZEM. [Suspect]
     Active Substance: DILTIAZEM
     Indication: HYPERTENSION
     Dosage: 360 MG, QD
     Route: 048
  8. ACETYLSALICYLIC ACID W/CAFFEINE [Concomitant]
     Indication: PRODUCT USED FOR UNKNOWN INDICATION
     Dosage: UNK
  9. BISACODYL. [Concomitant]
     Active Substance: BISACODYL
     Indication: PRODUCT USED FOR UNKNOWN INDICATION
     Dosage: UNK
  10. TIOTROPIUM [Concomitant]
     Active Substance: TIOTROPIUM
     Indication: PRODUCT USED FOR UNKNOWN INDICATION
     Dosage: UNK
  11. FUROSEMIDE. [Suspect]
     Active Substance: FUROSEMIDE
     Indication: OEDEMA
     Dosage: 40 MG, QD
     Route: 048
  12. CARBAMAZEPINE. [Suspect]
     Active Substance: CARBAMAZEPINE
     Dosage: 100 MG, QD
  13. ACEBUTOLOL [Concomitant]
     Active Substance: ACEBUTOLOL
     Indication: PRODUCT USED FOR UNKNOWN INDICATION
     Dosage: UNK
  14. GLUCOSAMINE [Concomitant]
     Active Substance: GLUCOSAMINE
     Indication: PRODUCT USED FOR UNKNOWN INDICATION
     Dosage: UNK
  15. QUINAPRIL. [Concomitant]
     Active Substance: QUINAPRIL
     Indication: PRODUCT USED FOR UNKNOWN INDICATION
     Dosage: UNK
  16. ROSUVASTATIN. [Concomitant]
     Active Substance: ROSUVASTATIN
     Indication: PRODUCT USED FOR UNKNOWN INDICATION
     Dosage: UNK
  17. CYCLOBENZAPRINE. [Suspect]
     Active Substance: CYCLOBENZAPRINE
     Dosage: 5 MG, QD
  18. MORPHINE [Suspect]
     Active Substance: MORPHINE
     Indication: FIBROMYALGIA
     Dosage: 10 MG, UNK
     Route: 065
  19. MAGNESIUM HYDROXIDE. [Concomitant]
     Active Substance: MAGNESIUM HYDROXIDE
     Indication: PRODUCT USED FOR UNKNOWN INDICATION
     Dosage: UNK
  20. CARBAMAZEPINE. [Suspect]
     Active Substance: CARBAMAZEPINE
     Indication: SEIZURE
     Dosage: 200 MG, BID
     Route: 065
  21. OXAZEPAM. [Suspect]
     Active Substance: OXAZEPAM
     Indication: INSOMNIA
     Dosage: 15 MG, UNK
     Route: 065
  22. ACETYLSALICYLIC ACID W/DIPYRIDAMOLE [Concomitant]
     Indication: PRODUCT USED FOR UNKNOWN INDICATION
     Dosage: UNK
  23. LACTULOSE. [Concomitant]
     Active Substance: LACTULOSE
     Indication: PRODUCT USED FOR UNKNOWN INDICATION
     Dosage: UNK
  24. NITROGLYCERIN. [Concomitant]
     Active Substance: NITROGLYCERIN
     Indication: PRODUCT USED FOR UNKNOWN INDICATION
     Dosage: UNK
  25. ASCORBIC ACID W/VACCINIUM MACROCARPON [Concomitant]
     Indication: PRODUCT USED FOR UNKNOWN INDICATION
     Dosage: UNK
  26. FUROSEMIDE. [Suspect]
     Active Substance: FUROSEMIDE
     Dosage: 10 MG, QD
     Route: 048
  27. DILTIAZEM. [Suspect]
     Active Substance: DILTIAZEM
     Indication: ANGINA PECTORIS
  28. LEVOFLOXACIN. [Concomitant]
     Active Substance: LEVOFLOXACIN
     Indication: PRODUCT USED FOR UNKNOWN INDICATION
     Dosage: UNK
  29. OMEPRAZOLE. [Concomitant]
     Active Substance: OMEPRAZOLE
     Indication: PRODUCT USED FOR UNKNOWN INDICATION
     Dosage: UNK

REACTIONS (5)
  - Blood calcium decreased [Recovering/Resolving]
  - Dementia [Recovering/Resolving]
  - Cognitive disorder [Recovering/Resolving]
  - Sedation [Recovering/Resolving]
  - Creatinine renal clearance decreased [Recovering/Resolving]
